FAERS Safety Report 11006027 (Version 3)
Quarter: 2015Q3

REPORT INFORMATION
  Report Type: Spontaneous
  Country: US (occurrence: US)
  Receive Date: 20150409
  Receipt Date: 20150716
  Transmission Date: 20151125
  Serious: Yes (Death, Hospitalization, Other)
  Sender: FDA-Public Use
  Company Number: US-009507513-1504USA003823

PATIENT
  Sex: Male
  Weight: 90.7 kg

DRUGS (3)
  1. JANUMET [Suspect]
     Active Substance: METFORMIN HYDROCHLORIDE\SITAGLIPTIN PHOSPHATE
     Dosage: 50/500 MG
     Route: 048
     Dates: start: 20120723
  2. JANUMET [Suspect]
     Active Substance: METFORMIN HYDROCHLORIDE\SITAGLIPTIN PHOSPHATE
     Indication: TYPE 2 DIABETES MELLITUS
     Dosage: 50/1000 MG  BID
     Route: 048
     Dates: start: 201109, end: 201212
  3. VICTOZA [Suspect]
     Active Substance: LIRAGLUTIDE
     Dosage: 1.8 MG, QD
     Route: 058
     Dates: start: 201208, end: 201402

REACTIONS (19)
  - Metastases to lymph nodes [Unknown]
  - Hyperlipidaemia [Unknown]
  - Anaemia [Unknown]
  - Metastases to liver [Unknown]
  - Myocardial infarction [Unknown]
  - Night sweats [Unknown]
  - Abdominal discomfort [Unknown]
  - Gastrooesophageal reflux disease [Unknown]
  - Diabetes mellitus inadequate control [Unknown]
  - Coronary artery disease [Unknown]
  - Pancreatitis acute [Unknown]
  - Cholelithiasis [Unknown]
  - Coronary arterial stent insertion [Unknown]
  - Adrenal disorder [Unknown]
  - Pancreatic carcinoma metastatic [Fatal]
  - Insulin-requiring type 2 diabetes mellitus [Unknown]
  - Haemangioma of liver [Unknown]
  - Hypertension [Unknown]
  - Ecchymosis [Unknown]

NARRATIVE: CASE EVENT DATE: 2011
